FAERS Safety Report 9815000 (Version 3)
Quarter: 2014Q1

REPORT INFORMATION
  Report Type: Report from Study
  Country: ES (occurrence: ES)
  Receive Date: 20140114
  Receipt Date: 20140204
  Transmission Date: 20141002
  Serious: Yes (Hospitalization)
  Sender: FDA-Public Use
  Company Number: ES-AMGEN-ESPCT2014001664

PATIENT
  Age: 78 Year
  Sex: Male
  Weight: 53.5 kg

DRUGS (6)
  1. PANITUMUMAB [Suspect]
     Indication: HEAD AND NECK CANCER
     Dosage: 308 UNK, Q2WK
     Route: 042
     Dates: start: 20131209
  2. PACLITAXEL [Concomitant]
     Indication: HEAD AND NECK CANCER
     Dosage: 123 UNK, QWK
     Route: 042
     Dates: start: 20131209
  3. AMLODIPINE [Concomitant]
     Dosage: 5 MG, QD
     Route: 048
  4. ATORVASTATIN [Concomitant]
     Dosage: 80 MG, QD
     Route: 048
  5. BISOPROLOL [Concomitant]
     Dosage: 5 MG, QD
     Route: 048
  6. TROMALYT [Concomitant]
     Dosage: 300 MG, QD
     Route: 048

REACTIONS (2)
  - Lobar pneumonia [Recovering/Resolving]
  - Duodenal ulcer [Unknown]
